FAERS Safety Report 7645434-7 (Version None)
Quarter: 2011Q3

REPORT INFORMATION
  Report Type: 
  Country: None (occurrence: None)
  Receive Date: 20110729
  Receipt Date: 20110725
  Transmission Date: 20111222
  Serious: Yes (Other)
  Sender: FDA-Public Use
  Company Number: CHPA2011US09971

PATIENT
  Sex: Female

DRUGS (2)
  1. EXCEDRIN ES BACK + BODY [Suspect]
     Dosage: 2 DF, QD
     Route: 048
     Dates: start: 20110725, end: 20110725
  2. EXCEDRIN ES BACK + BODY [Suspect]
     Indication: ANALGESIC THERAPY
     Dosage: 1 DF, Q6H
     Route: 048
     Dates: start: 20110724, end: 20110725

REACTIONS (4)
  - CHEST DISCOMFORT [None]
  - DYSPNOEA [None]
  - MALAISE [None]
  - HYPERTENSION [None]
